FAERS Safety Report 20283044 (Version 1)
Quarter: 2022Q1

REPORT INFORMATION
  Report Type: Spontaneous
  Country: US (occurrence: US)
  Receive Date: 20220103
  Receipt Date: 20220103
  Transmission Date: 20220423
  Serious: Yes (Other)
  Sender: FDA-Public Use
  Company Number: US-PURDUE-USA-2020-0275469

PATIENT
  Sex: Male

DRUGS (1)
  1. OXYCONTIN [Suspect]
     Active Substance: OXYCODONE HYDROCHLORIDE
     Indication: Product used for unknown indication
     Dosage: 80 MG, Q3H
     Route: 048

REACTIONS (7)
  - Drug dependence [Unknown]
  - Emotional distress [Unknown]
  - Memory impairment [Unknown]
  - Paranoia [Unknown]
  - Anxiety [Unknown]
  - Disturbance in attention [Unknown]
  - Pain [Unknown]
